FAERS Safety Report 5528911-4 (Version None)
Quarter: 2007Q4

REPORT INFORMATION
  Report Type: 
  Country: None (occurrence: None)
  Receive Date: 20071129
  Receipt Date: 20071126
  Transmission Date: 20080405
  Serious: Yes (Hospitalization, Other)
  Sender: FDA-Public Use
  Company Number: DE-AVENTIS-200712407DE

PATIENT
  Age: 33 Year
  Sex: Female

DRUGS (1)
  1. CLEXANE [Suspect]
     Dosage: DOSE: NOT REPORTED
     Dates: start: 20070101

REACTIONS (4)
  - HAEMORRHAGE [None]
  - HYPEREMESIS GRAVIDARUM [None]
  - IMMINENT ABORTION [None]
  - INTRA-UTERINE DEATH [None]
